FAERS Safety Report 6788444-4 (Version None)
Quarter: 2010Q2

REPORT INFORMATION
  Report Type: 
  Country: None (occurrence: None)
  Receive Date: 20100623
  Receipt Date: 20080310
  Transmission Date: 20101027
  Serious: No
  Sender: FDA-Public Use
  Company Number: US-PFIZER INC-2008022804

PATIENT
  Sex: Male
  Weight: 81.65 kg

DRUGS (2)
  1. GEODON [Suspect]
     Indication: SCHIZOAFFECTIVE DISORDER
  2. CYMBALTA [Suspect]
     Indication: DEPRESSION

REACTIONS (4)
  - BLOOD GLUCOSE INCREASED [None]
  - SLEEP DISORDER [None]
  - WEIGHT DECREASED [None]
  - WEIGHT INCREASED [None]
